FAERS Safety Report 11127175 (Version 1)
Quarter: 2015Q2

REPORT INFORMATION
  Report Type: Spontaneous
  Country: US (occurrence: US)
  Receive Date: 20150521
  Receipt Date: 20150521
  Transmission Date: 20150821
  Serious: No
  Sender: FDA-Public Use
  Company Number: US-B.I. PHARMACEUTICALS,INC./RIDGEFIELD-2015-BI-25363BP

PATIENT
  Age: 82 Year
  Sex: Male
  Weight: 77 kg

DRUGS (1)
  1. DULCO EASE PINK STOOL SOFTENER [Suspect]
     Active Substance: DOCUSATE SODIUM
     Indication: FAECES HARD
     Dosage: FORMULATION: SOFTGELS
     Route: 048
     Dates: start: 20150502

REACTIONS (1)
  - Gastrointestinal motility disorder [Unknown]

NARRATIVE: CASE EVENT DATE: 20150502
